FAERS Safety Report 8738640 (Version 2)
Quarter: 2013Q3

REPORT INFORMATION
  Report Type: Report from Study
  Country: AU (occurrence: AU)
  Receive Date: 20120823
  Receipt Date: 20130819
  Transmission Date: 20140515
  Serious: Yes (Hospitalization, Other)
  Sender: FDA-Public Use
  Company Number: PHHY2012AU072565

PATIENT
  Age: 34 Year
  Sex: Male

DRUGS (2)
  1. ACLASTA [Suspect]
     Dosage: 5 MG
     Route: 042
     Dates: start: 20110816
  2. ACLASTA [Suspect]
     Dosage: 5 MG
     Route: 042
     Dates: start: 20120827

REACTIONS (4)
  - Influenza [Recovering/Resolving]
  - Lower respiratory tract infection [Unknown]
  - Cough [Unknown]
  - Pyrexia [Unknown]
